FAERS Safety Report 23774517 (Version 4)
Quarter: 2025Q1

REPORT INFORMATION
  Report Type: Spontaneous
  Country: JP (occurrence: JP)
  Receive Date: 20240423
  Receipt Date: 20250106
  Transmission Date: 20250409
  Serious: Yes (Other)
  Sender: EISAI
  Company Number: JP-Eisai-202400779_LEN-RCC_P_1

PATIENT
  Age: 67 Year
  Sex: Female

DRUGS (4)
  1. LENVIMA [Suspect]
     Active Substance: LENVATINIB
     Indication: Renal cell carcinoma
     Route: 048
     Dates: start: 20230824
  2. LENVIMA [Suspect]
     Active Substance: LENVATINIB
     Dosage: THE ADMINISTRATION WAS ONGOING AS MEDICATION ON WEEKDAYS AND OFF ON WEEKENDS
     Route: 048
  3. KEYTRUDA [Suspect]
     Active Substance: PEMBROLIZUMAB
     Indication: Renal cell carcinoma
     Route: 041
     Dates: start: 20230824, end: 202404
  4. KEYTRUDA [Suspect]
     Active Substance: PEMBROLIZUMAB
     Route: 041
     Dates: end: 202408

REACTIONS (4)
  - Type 1 diabetes mellitus [Recovering/Resolving]
  - Rash [Recovering/Resolving]
  - Dysphonia [Recovering/Resolving]
  - Diarrhoea [Recovering/Resolving]

NARRATIVE: CASE EVENT DATE: 20230801
